FAERS Safety Report 7444242-X (Version None)
Quarter: 2011Q2

REPORT INFORMATION
  Report Type: 
  Country: None (occurrence: None)
  Receive Date: 20110429
  Receipt Date: 20110321
  Transmission Date: 20111010
  Serious: Yes (Other)
  Sender: FDA-Public Use
  Company Number: US-BAYER-2010-006638

PATIENT
  Age: 28 Year
  Sex: Female
  Weight: 58.957 kg

DRUGS (5)
  1. NSAID'S [Concomitant]
  2. FIORICET [Concomitant]
     Dosage: UNK
     Dates: start: 20070101, end: 20080101
  3. MAXALT [Concomitant]
     Dosage: UNK
     Dates: start: 20070101, end: 20080101
  4. YAZ [Suspect]
     Indication: CONTRACEPTION
     Dosage: UNK
     Route: 048
     Dates: start: 20060822, end: 20090308
  5. VITAMINE C [Concomitant]

REACTIONS (2)
  - GALLBLADDER DISORDER [None]
  - CHOLECYSTITIS CHRONIC [None]
